FAERS Safety Report 22134649 (Version 1)
Quarter: 2023Q1

REPORT INFORMATION
  Report Type: Spontaneous
  Country: SE (occurrence: SE)
  Receive Date: 20230324
  Receipt Date: 20230324
  Transmission Date: 20230418
  Serious: Yes (Hospitalization)
  Sender: FDA-Public Use
  Company Number: None

PATIENT
  Age: 76 Year
  Sex: Female

DRUGS (15)
  1. LEVETIRACETAM [Suspect]
     Active Substance: LEVETIRACETAM
     Indication: Visual impairment
     Dates: start: 20230111, end: 20230118
  2. DIAZEPAM [Concomitant]
     Active Substance: DIAZEPAM
     Dosage: 1 AS REQUIRED.
  3. VAGIFEM [Concomitant]
     Active Substance: ESTRADIOL
     Dosage: 10 MICROGRAM VAGINAL TABLET, 2-3 VAGINAL TABLETS/WEEK.
  4. GABAPENTIN [Concomitant]
     Active Substance: GABAPENTIN
     Dates: end: 20230118
  5. BACLOFEN [Concomitant]
     Active Substance: BACLOFEN
  6. REFRESH CELLUVISC [Concomitant]
     Active Substance: CARBOXYMETHYLCELLULOSE SODIUM
     Dosage: 1 DROP AS REQUIRED
  7. ELOCON [Concomitant]
     Active Substance: MOMETASONE FUROATE
     Dosage: ACCORDING TO SPECIAL PRESCRIPTION
  8. LACTULOSE [Concomitant]
     Active Substance: LACTULOSE
  9. PROPYLESS [Concomitant]
     Dosage: 1 X 2
  10. Postafen [Concomitant]
     Dosage: 1 X 2 AS REQUIRED
  11. ZOLPIDEM [Concomitant]
     Active Substance: ZOLPIDEM TARTRATE
     Dosage: 1-2 AS REQUIRED
  12. ESCITALOPRAM [Concomitant]
     Active Substance: ESCITALOPRAM OXALATE
  13. ACETAMINOPHEN [Concomitant]
     Active Substance: ACETAMINOPHEN
     Dosage: 1 AS REQUIRED
  14. VIMPAT [Concomitant]
     Active Substance: LACOSAMIDE
  15. MOMETASONE [Concomitant]
     Active Substance: MOMETASONE
     Dosage: 1-2 AS REQUIRED

REACTIONS (3)
  - Confusional state [Recovering/Resolving]
  - Depressed level of consciousness [Recovering/Resolving]
  - Hallucination [Recovering/Resolving]

NARRATIVE: CASE EVENT DATE: 20230101
